FAERS Safety Report 7227541-6 (Version None)
Quarter: 2011Q1

REPORT INFORMATION
  Report Type: 
  Country: None (occurrence: None)
  Receive Date: 20110105
  Receipt Date: 20101221
  Transmission Date: 20110831
  Serious: Yes (Other)
  Sender: FDA-Public Use
  Company Number: 2010SP065918

PATIENT
  Age: 5 Year
  Sex: Female
  Weight: 23.587 kg

DRUGS (1)
  1. CLARITIN [Suspect]
     Indication: PRODUCT USED FOR UNKNOWN INDICATION
     Dosage: ONCE;PO
     Route: 048

REACTIONS (5)
  - HALLUCINATION [None]
  - HYPERHIDROSIS [None]
  - TREMOR [None]
  - CRYING [None]
  - NERVOUSNESS [None]
